FAERS Safety Report 24718954 (Version 3)
Quarter: 2025Q2

REPORT INFORMATION
  Report Type: Spontaneous
  Country: US (occurrence: US)
  Receive Date: 20241210
  Receipt Date: 20250429
  Transmission Date: 20250717
  Serious: No
  Sender: PFIZER
  Company Number: US-PFIZER INC-PV202400159843

PATIENT
  Age: 80 Year
  Sex: Female

DRUGS (2)
  1. TUKYSA [Suspect]
     Active Substance: TUCATINIB
  2. TUKYSA [Suspect]
     Active Substance: TUCATINIB
     Dosage: 300 MG: 2 TABLETS TWICE DAILY

REACTIONS (3)
  - Memory impairment [Unknown]
  - Pain in extremity [Unknown]
  - Hypoaesthesia [Unknown]
